FAERS Safety Report 8240244 (Version 3)
Quarter: 2013Q3

REPORT INFORMATION
  Report Type: Spontaneous
  Country: US (occurrence: US)
  Receive Date: 20111110
  Receipt Date: 20130702
  Transmission Date: 20140515
  Serious: Yes (Other)
  Sender: FDA-Public Use
  Company Number: US-US-EMD SERONO, INC.-7093692

PATIENT
  Age: 52 Year
  Sex: Female
  Weight: 86 kg

DRUGS (6)
  1. REBIF [Suspect]
     Indication: MULTIPLE SCLEROSIS
     Route: 058
     Dates: end: 201007
  2. REBIF [Suspect]
     Route: 058
     Dates: start: 20110808
  3. REBIF [Suspect]
     Route: 058
     Dates: start: 20120904
  4. TYLENOL [Concomitant]
     Indication: PREMEDICATION
  5. METFORMIN [Concomitant]
     Dates: start: 2011
  6. CHOLESTEROL [Concomitant]
     Dates: start: 2011

REACTIONS (7)
  - Diabetes mellitus [Recovering/Resolving]
  - Blood cholesterol increased [Unknown]
  - Bone density abnormal [Unknown]
  - Back disorder [Recovering/Resolving]
  - Somnolence [Not Recovered/Not Resolved]
  - Multiple sclerosis relapse [Unknown]
  - Malaise [Recovering/Resolving]
